FAERS Safety Report 8456232-9 (Version None)
Quarter: 2012Q2

REPORT INFORMATION
  Report Type: 
  Country: None (occurrence: None)
  Receive Date: 20120621
  Receipt Date: 20120612
  Transmission Date: 20120825
  Serious: Yes (Hospitalization, Other)
  Sender: FDA-Public Use
  Company Number: US-ASTRAZENECA-2010SE51491

PATIENT
  Age: 49 Year
  Sex: Female

DRUGS (1)
  1. NEXIUM [Suspect]
     Route: 048

REACTIONS (8)
  - ARTHRITIS [None]
  - CEREBROVASCULAR ACCIDENT [None]
  - WEIGHT INCREASED [None]
  - GASTROOESOPHAGEAL REFLUX DISEASE [None]
  - BREAST CANCER [None]
  - CARDIAC FAILURE [None]
  - UTERINE CANCER [None]
  - RHEUMATOID ARTHRITIS [None]
